FAERS Safety Report 17850915 (Version 2)
Quarter: 2020Q2

REPORT INFORMATION
  Report Type: Spontaneous
  Country: ZA (occurrence: ZA)
  Receive Date: 20200602
  Receipt Date: 20200602
  Transmission Date: 20200714
  Serious: Yes (Life-Threatening)
  Sender: FDA-Public Use
  Company Number: ZA-ROCHE-2612645

PATIENT
  Age: 41 Year
  Sex: Female

DRUGS (1)
  1. ACTILYSE [Suspect]
     Active Substance: ALTEPLASE
     Indication: ISCHAEMIC STROKE
     Route: 042
     Dates: start: 20200526, end: 20200526

REACTIONS (3)
  - Haemorrhage intracranial [Not Recovered/Not Resolved]
  - Brain oedema [Not Recovered/Not Resolved]
  - Brain midline shift [Not Recovered/Not Resolved]

NARRATIVE: CASE EVENT DATE: 20200526
